FAERS Safety Report 4931213-8 (Version None)
Quarter: 2006Q1

REPORT INFORMATION
  Report Type: 
  Country: None (occurrence: None)
  Receive Date: 20060302
  Receipt Date: 20051129
  Transmission Date: 20060701
  Serious: Yes (Hospitalization, Disabling)
  Sender: FDA-Public Use
  Company Number: US-MERCK-0511USA04484

PATIENT
  Age: 42 Year
  Sex: Male
  Weight: 77 kg

DRUGS (2)
  1. VIOXX [Suspect]
     Indication: BACK PAIN
     Route: 048
     Dates: start: 20000618, end: 20040901
  2. VIOXX [Suspect]
     Route: 048
     Dates: start: 20000525

REACTIONS (32)
  - ANGINA PECTORIS [None]
  - ASTHENIA [None]
  - BLISTER [None]
  - CARDIAC DISORDER [None]
  - CARDIOMYOPATHY [None]
  - CELLULITIS [None]
  - CHEST PAIN [None]
  - CORONARY ARTERY DISEASE [None]
  - DEPRESSION [None]
  - DIABETES MELLITUS INADEQUATE CONTROL [None]
  - DIABETIC FOOT [None]
  - DIZZINESS [None]
  - DYSPNOEA [None]
  - ECZEMA [None]
  - HYPERHIDROSIS [None]
  - HYPERTENSION [None]
  - HYPOTENSION [None]
  - INCONTINENCE [None]
  - MYOCARDIAL INFARCTION [None]
  - NAIL AVULSION [None]
  - NECK INJURY [None]
  - OSTEOMYELITIS [None]
  - PALPITATIONS [None]
  - PULMONARY OEDEMA [None]
  - SKIN FISSURES [None]
  - SKIN ULCER [None]
  - STAPHYLOCOCCAL INFECTION [None]
  - SUICIDAL IDEATION [None]
  - TELANGIECTASIA [None]
  - TINEA PEDIS [None]
  - TOE AMPUTATION [None]
  - TRAUMATIC ULCER [None]
